FAERS Safety Report 10456698 (Version 1)
Quarter: 2014Q3

REPORT INFORMATION
  Report Type: Spontaneous
  Country: US (occurrence: US)
  Receive Date: 20140916
  Receipt Date: 20140916
  Transmission Date: 20150326
  Serious: No
  Sender: FDA-Public Use
  Company Number: US-PFIZER INC-2014253358

PATIENT
  Age: 66 Year
  Sex: Female
  Weight: 156 kg

DRUGS (2)
  1. WARFARIN [Suspect]
     Active Substance: WARFARIN
     Dosage: 3 MG, 1X/DAY
     Route: 048
     Dates: start: 2013
  2. TIKOSYN [Suspect]
     Active Substance: DOFETILIDE
     Dosage: 500 UG, 1X/DAY
     Route: 048
     Dates: start: 201408

REACTIONS (3)
  - International normalised ratio abnormal [Unknown]
  - International normalised ratio fluctuation [Unknown]
  - Depression [Unknown]

NARRATIVE: CASE EVENT DATE: 201408
